FAERS Safety Report 22096650 (Version 8)
Quarter: 2023Q2

REPORT INFORMATION
  Report Type: Report from Study
  Country: CN (occurrence: None)
  Receive Date: 20230315
  Receipt Date: 20230517
  Transmission Date: 20230722
  Serious: Yes (Death, Hospitalization)
  Sender: FDA-Public Use
  Company Number: CN-ROCHE-3300965

PATIENT
  Age: 71 Year
  Sex: Male

DRUGS (2)
  1. ATEZOLIZUMAB [Suspect]
     Active Substance: ATEZOLIZUMAB
     Indication: Neoplasm
     Dosage: THE MOST RECENT DOSE OF ATEZOLIZUMAB INJECTION PRIOR TO THE ONSET OF THE SAE WAS ON 05-JAN-2023.
     Route: 041
     Dates: start: 20221102, end: 20230221
  2. ATEZOLIZUMAB [Suspect]
     Active Substance: ATEZOLIZUMAB
     Dosage: THE MOST RECENT DOSE OF ATEZOLIZUMAB INJECTION PRIOR TO THE ONSET OF THE SAE WAS ON 05-JAN-2023.
     Route: 041
     Dates: start: 20230221

REACTIONS (1)
  - Obstructive airways disorder [Fatal]

NARRATIVE: CASE EVENT DATE: 20230220
